FAERS Safety Report 4927885-4 (Version None)
Quarter: 2006Q1

REPORT INFORMATION
  Report Type: 
  Country: None (occurrence: None)
  Receive Date: 20060228
  Receipt Date: 20060220
  Transmission Date: 20060701
  Serious: Yes (Other)
  Sender: FDA-Public Use
  Company Number: IT-GLAXOSMITHKLINE-B0413633A

PATIENT
  Age: 13 Year
  Sex: Female

DRUGS (2)
  1. CHLORPROMAZINE [Suspect]
     Dosage: 40MG PER DAY
     Route: 065
  2. QUETIAPINE [Concomitant]
     Route: 065

REACTIONS (8)
  - ABNORMAL BEHAVIOUR [None]
  - CONJUNCTIVAL HYPERAEMIA [None]
  - DRUG INEFFECTIVE [None]
  - EYELID PTOSIS [None]
  - HORNER'S SYNDROME [None]
  - OPHTHALMOPLEGIA [None]
  - PANIC ATTACK [None]
  - PUPILS UNEQUAL [None]
